FAERS Safety Report 17845176 (Version 1)
Quarter: 2020Q2

REPORT INFORMATION
  Report Type: Spontaneous
  Country: US (occurrence: US)
  Receive Date: 20200601
  Receipt Date: 20200601
  Transmission Date: 20200714
  Serious: No
  Sender: FDA-Public Use
  Company Number: US-SHIRE-US202006457

PATIENT
  Sex: Female

DRUGS (1)
  1. GATTEX [Suspect]
     Active Substance: TEDUGLUTIDE\WATER
     Indication: PRODUCT USED FOR UNKNOWN INDICATION
     Dosage: 0.5700 UNK, 1X/DAY:QD
     Route: 058
     Dates: start: 20181228

REACTIONS (4)
  - Food poisoning [Recovering/Resolving]
  - Inability to afford medication [Recovered/Resolved]
  - Diarrhoea [Recovering/Resolving]
  - Product dose omission [Unknown]
